FAERS Safety Report 8095016-0 (Version None)
Quarter: 2012Q1

REPORT INFORMATION
  Report Type: 
  Country: None (occurrence: None)
  Receive Date: 20120125
  Receipt Date: 20120120
  Transmission Date: 20120608
  Serious: Yes (Death, Hospitalization)
  Sender: FDA-Public Use
  Company Number: 2011SP060025

PATIENT
  Age: 65 Year
  Sex: Male
  Weight: 66 kg

DRUGS (6)
  1. DILTIAZEM HCL [Concomitant]
  2. ISOSORBIDE MONONITRATE [Concomitant]
  3. CYMBALTA [Concomitant]
  4. TEMODAL [Suspect]
     Indication: GLIOBLASTOMA MULTIFORME
     Dosage: 140 MG;QD;PO
     Route: 048
     Dates: start: 20110502, end: 20110608
  5. PHENYTOIN [Suspect]
     Indication: EPILEPSY
     Dosage: 130 MG;BID;PO
     Route: 048
     Dates: start: 20110423, end: 20110601
  6. FAMOTIDINE [Concomitant]

REACTIONS (4)
  - NEOPLASM PROGRESSION [None]
  - GLIOBLASTOMA MULTIFORME [None]
  - INTERSTITIAL LUNG DISEASE [None]
  - TOXIC SKIN ERUPTION [None]
